FAERS Safety Report 9816890 (Version 1)
Quarter: 2014Q1

REPORT INFORMATION
  Report Type: Spontaneous
  Country: US (occurrence: US)
  Receive Date: 20140114
  Receipt Date: 20140114
  Transmission Date: 20141002
  Serious: No
  Sender: FDA-Public Use
  Company Number: US-BAUSCH-BL-2013-005305

PATIENT
  Age: 66 Year
  Sex: Female

DRUGS (1)
  1. LOTEMAX (LOTEPREDNOL ETABONATE OPHTHALMIC GEL 0.5%) [Suspect]
     Indication: DRY EYE
     Dosage: ONE DROP INTO LEFT EYE TWICE DAILY
     Route: 047
     Dates: start: 20130906, end: 20130913

REACTIONS (2)
  - Off label use [Recovered/Resolved]
  - Dizziness [Recovered/Resolved]
